FAERS Safety Report 5223805-6 (Version None)
Quarter: 2007Q1

REPORT INFORMATION
  Report Type: 
  Country: None (occurrence: None)
  Receive Date: 20070130
  Receipt Date: 20070122
  Transmission Date: 20070707
  Serious: Yes (Other)
  Sender: FDA-Public Use
  Company Number: 2007UW01331

PATIENT
  Age: 57 Year
  Sex: Male
  Weight: 99.8 kg

DRUGS (2)
  1. NEXIUM [Suspect]
     Indication: GASTROOESOPHAGEAL REFLUX DISEASE
     Route: 048
  2. VYTORIN [Concomitant]

REACTIONS (2)
  - BONE DISORDER [None]
  - FEMUR FRACTURE [None]
